FAERS Safety Report 22104307 (Version 1)
Quarter: 2023Q1

REPORT INFORMATION
  Report Type: Report from Study
  Country: US (occurrence: None)
  Receive Date: 20230316
  Receipt Date: 20230316
  Transmission Date: 20230417
  Serious: Yes (Other)
  Sender: FDA-Public Use
  Company Number: 2023A058457

PATIENT
  Sex: Female
  Weight: 61.2 kg

DRUGS (4)
  1. TAGRISSO [Suspect]
     Active Substance: OSIMERTINIB
     Indication: Lung neoplasm malignant
     Route: 048
     Dates: start: 20221202
  2. FERROUS GLUCONATE [Concomitant]
     Active Substance: FERROUS GLUCONATE
  3. MULTI-VITE 50 + OVER [Concomitant]
  4. CALCIUM [Concomitant]
     Active Substance: CALCIUM

REACTIONS (8)
  - Headache [Unknown]
  - Bone cancer [Unknown]
  - Spinal cord injury [Unknown]
  - Neoplasm malignant [Unknown]
  - Diarrhoea [Unknown]
  - Back pain [Unknown]
  - Decreased appetite [Unknown]
  - Dysgeusia [Unknown]
